FAERS Safety Report 10033862 (Version 3)
Quarter: 2014Q2

REPORT INFORMATION
  Report Type: Spontaneous
  Country: IE (occurrence: IE)
  Receive Date: 20140325
  Receipt Date: 20140408
  Transmission Date: 20141212
  Serious: Yes (Hospitalization)
  Sender: FDA-Public Use
  Company Number: IE-AMGEN-IRLSP2014020270

PATIENT
  Age: 53 Year
  Sex: Female

DRUGS (10)
  1. NEULASTA [Suspect]
     Indication: COLORECTAL CANCER
     Dosage: 6 MG/0.6ML, POST CHEMO TWO WEEKLY
     Route: 058
     Dates: start: 20140306
  2. CALCIUM FOLINATE [Concomitant]
     Indication: COLORECTAL CANCER
     Dosage: UNK
  3. OXALIPLATIN [Concomitant]
     Indication: COLORECTAL CANCER
     Dosage: UNK
  4. FLUOROURACIL [Concomitant]
     Indication: COLORECTAL CANCER
     Dosage: UNK
  5. BUSCOPAN [Concomitant]
     Dosage: UNK
  6. PARACETAMOL [Concomitant]
     Dosage: UNK
  7. ZOTAN [Concomitant]
     Dosage: UNK
  8. DEXAMETHASONE [Concomitant]
     Dosage: UNK
  9. DOMERID [Concomitant]
     Dosage: UNK
  10. VALOID                             /00014902/ [Concomitant]
     Dosage: UNK

REACTIONS (1)
  - Investigation [Not Recovered/Not Resolved]
